FAERS Safety Report 7780646-3 (Version None)
Quarter: 2011Q3

REPORT INFORMATION
  Report Type: 
  Country: None (occurrence: None)
  Receive Date: 20110927
  Receipt Date: 20110228
  Transmission Date: 20111222
  Serious: No
  Sender: FDA-Public Use
  Company Number: US-BRISTOL-MYERS SQUIBB COMPANY-15541287

PATIENT
  Age: 64 Year
  Sex: Female

DRUGS (4)
  1. HYDROCHLOROTHIAZIDE [Suspect]
     Indication: HYPERTENSION
     Dosage: RESTARTED ON 27JAN11
     Dates: start: 20110124
  2. GLYBURIDE [Concomitant]
  3. AVAPRO [Suspect]
     Indication: HYPERTENSION
     Dosage: RESTARTED ON 27JAN11
     Route: 048
     Dates: start: 20110124
  4. METFORMIN HCL [Concomitant]

REACTIONS (4)
  - TREMOR [None]
  - FEELING ABNORMAL [None]
  - NERVOUSNESS [None]
  - FEELING JITTERY [None]
